FAERS Safety Report 24772384 (Version 1)
Quarter: 2024Q4

REPORT INFORMATION
  Report Type: Spontaneous
  Country: US (occurrence: None)
  Receive Date: 20241224
  Receipt Date: 20241224
  Transmission Date: 20250114
  Serious: Yes (Hospitalization)
  Sender: Public
  Company Number: None

PATIENT
  Age: 66 Year
  Sex: Female
  Weight: 87.4 kg

DRUGS (1)
  1. VANCOMYCIN [Suspect]
     Active Substance: VANCOMYCIN
     Indication: Antibiotic prophylaxis
     Dosage: OTHER FREQUENCY : ONCE;?
     Route: 041
     Dates: start: 20241216, end: 20241216

REACTIONS (9)
  - Hyperventilation [None]
  - Nausea [None]
  - Erythema [None]
  - Therapy cessation [None]
  - Unresponsive to stimuli [None]
  - Hyperhidrosis [None]
  - Respiratory failure [None]
  - Respiratory tract oedema [None]
  - Anaphylactic shock [None]

NARRATIVE: CASE EVENT DATE: 20241216
